FAERS Safety Report 16308084 (Version 1)
Quarter: 2019Q2

REPORT INFORMATION
  Report Type: Spontaneous
  Country: US (occurrence: US)
  Receive Date: 20190514
  Receipt Date: 20190514
  Transmission Date: 20190711
  Serious: Yes (Other)
  Sender: FDA-Public Use
  Company Number: US-ROCHE-2312115

PATIENT
  Sex: Female
  Weight: 47.22 kg

DRUGS (9)
  1. KADCYLA [Suspect]
     Active Substance: ADO-TRASTUZUMAB EMTANSINE
     Indication: OFF LABEL USE
  2. HERCEPTIN [Suspect]
     Active Substance: TRASTUZUMAB
     Indication: LUNG CARCINOMA CELL TYPE UNSPECIFIED STAGE IV
     Route: 065
  3. MIRALAX [Concomitant]
     Active Substance: POLYETHYLENE GLYCOL 3350
     Indication: OFF LABEL USE
  4. DECADRON [Concomitant]
     Active Substance: DEXAMETHASONE
     Indication: OFF LABEL USE
     Dosage: ONGOING: UNKNOWN
     Route: 065
  5. COLACE [Concomitant]
     Active Substance: DOCUSATE SODIUM
     Indication: OFF LABEL USE
     Route: 065
     Dates: start: 20190422, end: 20190425
  6. NORCO [Concomitant]
     Active Substance: ACETAMINOPHEN\HYDROCODONE BITARTRATE
     Indication: OFF LABEL USE
     Route: 065
     Dates: start: 20190422, end: 20190425
  7. HERCEPTIN [Suspect]
     Active Substance: TRASTUZUMAB
     Indication: OFF LABEL USE
  8. KADCYLA [Suspect]
     Active Substance: ADO-TRASTUZUMAB EMTANSINE
     Indication: LUNG CARCINOMA CELL TYPE UNSPECIFIED STAGE IV
     Dosage: ONGOING:YES
     Route: 065
     Dates: start: 20190418
  9. RELISTOR [Concomitant]
     Active Substance: METHYLNALTREXONE BROMIDE
     Indication: OFF LABEL USE

REACTIONS (11)
  - Abdominal pain upper [Not Recovered/Not Resolved]
  - Intestinal obstruction [Not Recovered/Not Resolved]
  - Nausea [Unknown]
  - Dehydration [Unknown]
  - Off label use [Unknown]
  - Intentional product use issue [Unknown]
  - Gastric dilatation [Not Recovered/Not Resolved]
  - Cerebral disorder [Not Recovered/Not Resolved]
  - Pain [Unknown]
  - Flatulence [Not Recovered/Not Resolved]
  - Constipation [Unknown]
